FAERS Safety Report 4625828-4 (Version None)
Quarter: 2005Q1

REPORT INFORMATION
  Report Type: 
  Country: None (occurrence: None)
  Receive Date: 20050330
  Receipt Date: 20050311
  Transmission Date: 20050727
  Serious: Yes (Other)
  Sender: FDA-Public Use
  Company Number: FR_040704389

PATIENT
  Age: 57 Year
  Sex: Female
  Weight: 63 kg

DRUGS (4)
  1. TERIPARATIDE [Suspect]
     Indication: OSTEOPOROSIS
     Dosage: 20 UG DAY
     Dates: start: 20020702, end: 20030616
  2. PLACEBO [Suspect]
     Indication: OSTEOPOROSIS
     Dosage: 60 MG DAY
     Dates: start: 20030618, end: 20040528
  3. INTERCYTON (FLAVODATE DISODIUM) [Concomitant]
  4. HOMEOPATHIC AGENT [Concomitant]

REACTIONS (1)
  - HEPATIC FIBROSIS [None]
